FAERS Safety Report 10430528 (Version 3)
Quarter: 2014Q4

REPORT INFORMATION
  Report Type: Report from Study
  Country: US (occurrence: US)
  Receive Date: 20140904
  Receipt Date: 20141125
  Transmission Date: 20150528
  Serious: Yes (Other)
  Sender: FDA-Public Use
  Company Number: US-MUNDIPHARMA DS AND PHARMACOVIGILANCE-USA-2014-0116984

PATIENT
  Age: 41 Year
  Sex: Male

DRUGS (3)
  1. BTDS PATCH [Suspect]
     Active Substance: BUPRENORPHINE
     Indication: BACK DISORDER
     Dosage: 10 MCG/HR, WEEKLY
     Route: 062
     Dates: start: 201408
  2. BTDS PATCH [Suspect]
     Active Substance: BUPRENORPHINE
     Indication: PAIN
  3. BTDS PATCH [Suspect]
     Active Substance: BUPRENORPHINE
     Indication: OSTEOARTHRITIS
     Dosage: 15 MCG/HR, WEEKLY
     Route: 062
     Dates: start: 20141027

REACTIONS (5)
  - Hyperhidrosis [Unknown]
  - Breakthrough pain [Unknown]
  - Resection of rectum [Unknown]
  - Inadequate analgesia [Unknown]
  - Product adhesion issue [Unknown]

NARRATIVE: CASE EVENT DATE: 20141106
